FAERS Safety Report 11716275 (Version 2)
Quarter: 2015Q4

REPORT INFORMATION
  Report Type: Spontaneous
  Country: US (occurrence: US)
  Receive Date: 20151104
  Receipt Date: 20151110
  Transmission Date: 20160304
  Serious: No
  Sender: FDA-Public Use
  Company Number: US-ELI_LILLY_AND_COMPANY-US201107001833

PATIENT
  Age: 81 Year
  Sex: Female

DRUGS (4)
  1. FORTEO [Suspect]
     Active Substance: TERIPARATIDE
     Dosage: 20 UG, QD
  2. FORTEO [Suspect]
     Active Substance: TERIPARATIDE
     Dosage: 20 UG, QD
  3. FORTEO [Suspect]
     Active Substance: TERIPARATIDE
     Indication: OSTEOPOROSIS
     Dosage: 20 UG, QD
     Dates: start: 20110626
  4. CEREFOLIN NAC [Concomitant]

REACTIONS (7)
  - Discomfort [Unknown]
  - Haemorrhage [Recovered/Resolved]
  - Musculoskeletal discomfort [Recovered/Resolved]
  - Muscular weakness [Unknown]
  - Vomiting [Unknown]
  - Sedation [Unknown]
  - Nausea [Unknown]

NARRATIVE: CASE EVENT DATE: 20110628
